FAERS Safety Report 10585114 (Version 2)
Quarter: 2014Q4

REPORT INFORMATION
  Report Type: Spontaneous
  Country: NL (occurrence: NL)
  Receive Date: 20141114
  Receipt Date: 20141124
  Transmission Date: 20150529
  Serious: Yes (Death, Hospitalization)
  Sender: FDA-Public Use
  Company Number: NL-PFIZER INC-2014313642

PATIENT
  Age: 65 Year
  Sex: Male
  Weight: 89.5 kg

DRUGS (26)
  1. CIALIS [Concomitant]
     Active Substance: TADALAFIL
     Dosage: 20 MG, UNK
  2. TESTOSTERON [Concomitant]
  3. MYCOPHENOLIC ACID. [Concomitant]
     Active Substance: MYCOPHENOLIC ACID
     Dosage: 500 MG, 2X/DAY
     Route: 048
     Dates: start: 20141028
  4. CABERGOLINE. [Concomitant]
     Active Substance: CABERGOLINE
     Dosage: 1 DF, WEEKLY AND 0.5MG 1X/DAY
     Route: 048
     Dates: start: 20141028
  5. LEVOTHYROXINE [Concomitant]
     Active Substance: LEVOTHYROXINE
     Dosage: 100 UG, 1X/DAY
  6. TACROLIMUS. [Concomitant]
     Active Substance: TACROLIMUS
     Dosage: 2 MG, 2X/DAY
     Route: 048
     Dates: start: 20141028
  7. SODIUM CARBONATE [Concomitant]
     Active Substance: SODIUM CARBONATE
     Dosage: 500 MG, 1X/DAY
     Route: 048
     Dates: start: 20141028
  8. ATORVASTATINE /01326101/ [Concomitant]
     Dosage: 40 MG, 1X/DAY
     Route: 048
     Dates: start: 20141028
  9. FERO GRAD LP VITAMINE C /00191801/ [Concomitant]
     Dosage: 105 MG, 1X/DAY
  10. SOMAVERT [Suspect]
     Active Substance: PEGVISOMANT
     Indication: ACROMEGALY
     Dosage: UNK, 1X/DAY
     Route: 058
     Dates: start: 20140919
  11. ALFACALCIDOL [Concomitant]
     Active Substance: ALFACALCIDOL
     Dosage: 4 DF, 1X/DAY
     Route: 048
     Dates: start: 20141028
  12. CIPROFLOXACIN. [Concomitant]
     Active Substance: CIPROFLOXACIN
     Dosage: 500 MG, 2X/DAY
  13. ALLOPURINOL. [Concomitant]
     Active Substance: ALLOPURINOL
     Dosage: 100 MG, 1X/DAY
     Route: 048
     Dates: start: 20141028
  14. PANTOPRAZOLE [Concomitant]
     Active Substance: PANTOPRAZOLE SODIUM
     Dosage: 20 MG, 2X/DAY
     Route: 048
  15. PREDNISOLONE. [Concomitant]
     Active Substance: PREDNISOLONE
     Dosage: 1 MG, 1X/DAY
     Route: 048
  16. ACENOCOUMAROL [Concomitant]
     Active Substance: ACENOCOUMAROL
     Dosage: 1 MG, UNK
     Route: 048
     Dates: start: 20041028
  17. CINACALCET [Concomitant]
     Active Substance: CINACALCET
     Dosage: 30 MG, 1X/DAY
     Route: 048
  18. TRAMADOL [Concomitant]
     Active Substance: TRAMADOL
     Dosage: 50 MG, 3X/DAY
     Route: 048
     Dates: start: 20141028
  19. ZOPICLON [Concomitant]
     Active Substance: ZOPICLONE
     Dosage: 7.5 MG, 1X/DAY
     Route: 048
     Dates: start: 20141028
  20. LEVOTHYROXINE [Concomitant]
     Active Substance: LEVOTHYROXINE
     Dosage: 25 ?G, 1X/DAY
     Route: 048
  21. FUROSEMIDE. [Concomitant]
     Active Substance: FUROSEMIDE
     Dosage: 40 MG, 2X/DAY
     Route: 048
     Dates: start: 20141028
  22. PARACETAMOL [Concomitant]
     Active Substance: ACETAMINOPHEN
     Dosage: 1000 MG, 4X/DAY
     Route: 048
     Dates: start: 20141028
  23. LACTULOSE. [Concomitant]
     Active Substance: LACTULOSE
     Dosage: 30 ML, 1X/DAY
     Route: 048
     Dates: start: 20141028
  24. PREDNISOLONE. [Concomitant]
     Active Substance: PREDNISOLONE
     Dosage: 5 MG, 3X/DAY
     Route: 048
     Dates: start: 20141028
  25. OCTREOTIDE [Concomitant]
     Active Substance: OCTREOTIDE
     Dosage: 30 MG, 1X/3 WEEKS
     Route: 030
     Dates: start: 20141028
  26. HYDROCHLOROTHIAZIDE/METOPROLOL SUCCINATE [Concomitant]
     Dosage: 25 MG, 2X/DAY
     Route: 048
     Dates: start: 20141028

REACTIONS (1)
  - Death [Fatal]

NARRATIVE: CASE EVENT DATE: 20141103
